FAERS Safety Report 8318574-7 (Version None)
Quarter: 2012Q2

REPORT INFORMATION
  Report Type: 
  Country: None (occurrence: None)
  Receive Date: 20120427
  Receipt Date: 20120418
  Transmission Date: 20120825
  Serious: Yes (Other)
  Sender: FDA-Public Use
  Company Number: JP-ELI_LILLY_AND_COMPANY-JP201204007930

PATIENT
  Sex: Male

DRUGS (2)
  1. GEMZAR [Suspect]
     Route: 042
  2. CISPLATIN [Concomitant]
     Indication: NEOPLASM MALIGNANT
     Route: 042

REACTIONS (5)
  - SURGERY [None]
  - ARTHRALGIA [None]
  - CHEST PAIN [None]
  - PAIN IN EXTREMITY [None]
  - MUSCLE TWITCHING [None]
